FAERS Safety Report 18039623 (Version 1)
Quarter: 2020Q3

REPORT INFORMATION
  Report Type: Spontaneous
  Country: FR (occurrence: FR)
  Receive Date: 20200718
  Receipt Date: 20200718
  Transmission Date: 20201103
  Serious: Yes (Disabling)
  Sender: FDA-Public Use
  Company Number: FR-ACCORD-191124

PATIENT
  Age: 45 Year
  Sex: Female
  Weight: 68 kg

DRUGS (9)
  1. LANSOPRAZOLE. [Concomitant]
     Active Substance: LANSOPRAZOLE
  2. ZOPHREN [Concomitant]
     Active Substance: ONDANSETRON
  3. DEXAMETHASONE. [Concomitant]
     Active Substance: DEXAMETHASONE
  4. VALACICLOVIR [Concomitant]
     Active Substance: VALACYCLOVIR HYDROCHLORIDE
  5. CARBOPLATIN. [Suspect]
     Active Substance: CARBOPLATIN
     Indication: LYMPHOMA
     Dates: start: 20200527
  6. BACTRIM [Concomitant]
     Active Substance: SULFAMETHOXAZOLE\TRIMETHOPRIM
  7. PELMEG [Concomitant]
     Active Substance: PEGFILGRASTIM
     Dosage: STRENGTH?6 MG
  8. CYTARABINE EBEWE [Suspect]
     Active Substance: CYTARABINE
     Indication: HODGKIN^S DISEASE
     Dosage: STRENGTH? 1 G/20 ML
     Route: 042
     Dates: start: 20200528, end: 20200528
  9. EMEND [Concomitant]
     Active Substance: APREPITANT

REACTIONS (1)
  - Cerebellar syndrome [Not Recovered/Not Resolved]

NARRATIVE: CASE EVENT DATE: 202006
